FAERS Safety Report 5496186-0 (Version None)
Quarter: 2007Q4

REPORT INFORMATION
  Report Type: 
  Country: None (occurrence: None)
  Receive Date: 20071025
  Receipt Date: 20071017
  Transmission Date: 20080405
  Serious: Yes (Hospitalization)
  Sender: FDA-Public Use
  Company Number: US-BRISTOL-MYERS SQUIBB COMPANY-13946108

PATIENT
  Age: 8 Decade
  Sex: Female

DRUGS (4)
  1. AZACTAM [Suspect]
     Indication: SEPSIS
     Dosage: 1 GRAM EVERY 8 HOURS FOR A TOTAL OF TWO WEEKS, WAS GIVEN IN D5W
     Route: 042
     Dates: start: 20070901
  2. FLORINEF [Concomitant]
  3. LOVENOX [Concomitant]
  4. CORTEF [Concomitant]

REACTIONS (4)
  - ASTHENIA [None]
  - DIARRHOEA [None]
  - ELECTROLYTE IMBALANCE [None]
  - LETHARGY [None]
